FAERS Safety Report 18695585 (Version 1)
Quarter: 2021Q1

REPORT INFORMATION
  Report Type: Other
  Country: US (occurrence: US)
  Receive Date: 20210104
  Receipt Date: 20210104
  Transmission Date: 20210419
  Serious: Yes (Hospitalization)
  Sender: FDA-Public Use
  Company Number: US-ROCHE-2719766

PATIENT
  Age: 73 Year
  Sex: Female

DRUGS (19)
  1. LANOXIN [Concomitant]
     Active Substance: DIGOXIN
  2. GLUCOPHAGE [Concomitant]
     Active Substance: METFORMIN HYDROCHLORIDE
     Route: 048
  3. VENTOLIN [Concomitant]
     Active Substance: ALBUTEROL SULFATE
     Dosage: 108 (90 BASE)MCG/ACT INHALER
  4. PROVENTIL [Concomitant]
     Active Substance: ALBUTEROL
  5. NASACORT AQ [Concomitant]
     Active Substance: TRIAMCINOLONE ACETONIDE
     Route: 045
  6. TOPROL XL [Concomitant]
     Active Substance: METOPROLOL SUCCINATE
     Route: 048
  7. KLONOPIN [Suspect]
     Active Substance: CLONAZEPAM
     Indication: PRODUCT USED FOR UNKNOWN INDICATION
     Route: 048
  8. LEVOTHYROXINE. [Concomitant]
     Active Substance: LEVOTHYROXINE
  9. ESBRIET [Suspect]
     Active Substance: PIRFENIDONE
     Indication: INTERSTITIAL LUNG DISEASE
     Dosage: TAKE ONE TABLET BY MOUTH THREE TIMES A DAY
     Route: 048
  10. LEXAPROFEN [Concomitant]
  11. PULMICORT TURBUHALER [Concomitant]
     Active Substance: BUDESONIDE
  12. VIBRAMYCIN [Concomitant]
     Active Substance: DOXYCYCLINE
     Route: 048
  13. WARFARIN [Concomitant]
     Active Substance: WARFARIN
     Route: 048
  14. ESBRIET [Suspect]
     Active Substance: PIRFENIDONE
     Indication: IDIOPATHIC PULMONARY FIBROSIS
  15. ESTRACE [Concomitant]
     Active Substance: ESTRADIOL
     Route: 048
  16. TYLENOL [Concomitant]
     Active Substance: ACETAMINOPHEN
  17. ZYRTEC (UNITED STATES) [Concomitant]
  18. SINGULAIR [Concomitant]
     Active Substance: MONTELUKAST SODIUM
     Route: 048
  19. PEPCID [Concomitant]
     Active Substance: FAMOTIDINE

REACTIONS (18)
  - Anxiety disorder [Unknown]
  - Atrial fibrillation [Unknown]
  - Adult failure to thrive [Unknown]
  - Back pain [Unknown]
  - Major depression [Unknown]
  - Type 2 diabetes mellitus [Unknown]
  - Asthma [Unknown]
  - Hypothyroidism [Unknown]
  - Mitral valve incompetence [Unknown]
  - Amnesia [Unknown]
  - Interstitial lung disease [Unknown]
  - Vitamin D deficiency [Unknown]
  - Muscular weakness [Unknown]
  - Pulmonary fibrosis [Unknown]
  - Gastrooesophageal reflux disease [Unknown]
  - Decreased appetite [Unknown]
  - Pain [Unknown]
  - Dry eye [Unknown]

NARRATIVE: CASE EVENT DATE: 20191231
